FAERS Safety Report 13504064 (Version 13)
Quarter: 2019Q3

REPORT INFORMATION
  Report Type: Report from Study
  Country: TW (occurrence: TW)
  Receive Date: 20170502
  Receipt Date: 20190930
  Transmission Date: 20191004
  Serious: Yes (Life-Threatening, Hospitalization, Other)
  Sender: FDA-Public Use
  Company Number: TW-INCYTE CORPORATION-2017IN003274

PATIENT

DRUGS (49)
  1. APIXABAN [Concomitant]
     Active Substance: APIXABAN
     Indication: CARDIAC FAILURE
     Dosage: 2.5 MG, UNK
     Route: 048
     Dates: start: 20170423, end: 20170501
  2. COLCHICINE. [Concomitant]
     Active Substance: COLCHICINE
     Indication: GOUT
     Dosage: 0.5 MG, UNK
     Route: 048
     Dates: start: 20170612, end: 20170703
  3. IWELL [Concomitant]
     Indication: PROPHYLAXIS
     Dosage: 1 DF, UNK
     Route: 048
     Dates: start: 20010301, end: 20170417
  4. JAKAVI [Suspect]
     Active Substance: RUXOLITINIB
     Indication: MYELOFIBROSIS
     Dosage: 5 MG, UNK
     Route: 048
     Dates: start: 20161226, end: 20170416
  5. AMIODARONE HCL [Concomitant]
     Active Substance: AMIODARONE HYDROCHLORIDE
     Dosage: 300 MG, UNK, 150-300 MG
     Route: 042
     Dates: start: 20180212, end: 20180213
  6. AMIODARONE HCL [Concomitant]
     Active Substance: AMIODARONE HYDROCHLORIDE
     Dosage: 200 MG, UNK
     Route: 055
     Dates: start: 20180212, end: 20180214
  7. AMIODARONE [Concomitant]
     Active Substance: AMIODARONE
     Dosage: 300 MG, UNK
     Route: 042
     Dates: start: 20180212, end: 20180213
  8. BISOPROLOL [Concomitant]
     Active Substance: BISOPROLOL
     Indication: CARDIAC FAILURE
     Dosage: 1 DF, UNK
     Route: 048
     Dates: start: 20140519, end: 20170817
  9. BISOPROLOL [Concomitant]
     Active Substance: BISOPROLOL
     Dosage: 2.5 MG, UNK
     Route: 048
     Dates: start: 20180503, end: 20180531
  10. ESOMEPRAZOLE. [Concomitant]
     Active Substance: ESOMEPRAZOLE MAGNESIUM
     Indication: PROPHYLAXIS
     Dosage: 40 MG, UNK
     Route: 048
     Dates: start: 20170417, end: 20170418
  11. FEBUXOSTAT. [Concomitant]
     Active Substance: FEBUXOSTAT
     Dosage: 0.5 DF, UNK
     Route: 048
     Dates: start: 20170417, end: 20170515
  12. VALSARTAN. [Concomitant]
     Active Substance: VALSARTAN
     Indication: HYPERTENSION
     Dosage: 1 DF, UNK
     Route: 048
     Dates: start: 20160922, end: 20170417
  13. AMIODARONE HCL [Concomitant]
     Active Substance: AMIODARONE HYDROCHLORIDE
     Dosage: 200 MG, UNK
     Route: 048
     Dates: start: 20170421, end: 20170421
  14. COLCHICINE. [Concomitant]
     Active Substance: COLCHICINE
     Dosage: 0.5 MG, UNK
     Route: 048
     Dates: start: 20170807, end: 20171009
  15. FAMOTIDINE. [Concomitant]
     Active Substance: FAMOTIDINE
     Indication: PROPHYLAXIS
     Dosage: 20 MG, UNK
     Route: 042
     Dates: start: 20180211, end: 20180213
  16. FEBUXOSTAT. [Concomitant]
     Active Substance: FEBUXOSTAT
     Dosage: 0.5 DF, UNK
     Route: 048
     Dates: start: 20170612
  17. CARDIOLOL [Concomitant]
     Indication: CARDIAC FAILURE
     Dosage: 6.25 MG, UNK
     Route: 048
     Dates: start: 20170418, end: 20170420
  18. DABIGATRAN [Concomitant]
     Active Substance: DABIGATRAN
     Indication: ATRIAL FIBRILLATION
     Dosage: 1 DF, UNK
     Route: 048
     Dates: start: 20140512, end: 20170817
  19. FUROSEMIDE. [Concomitant]
     Active Substance: FUROSEMIDE
     Indication: HYPERTENSION
     Dosage: 0.5 DF, UNK
     Route: 048
     Dates: start: 20140519, end: 20170817
  20. MAGNESIUM OXIDE. [Concomitant]
     Active Substance: MAGNESIUM OXIDE
     Indication: PROPHYLAXIS
     Dosage: 250 MG, UNK
     Route: 048
     Dates: start: 20170824, end: 20171116
  21. JAKAVI [Suspect]
     Active Substance: RUXOLITINIB
     Dosage: 10 MG, UNK
     Route: 048
     Dates: start: 20170509
  22. JAKAVI [Suspect]
     Active Substance: RUXOLITINIB
     Dosage: 10 MG, UNK
     Route: 048
     Dates: start: 20170511, end: 20170515
  23. DABIGATRAN [Concomitant]
     Active Substance: DABIGATRAN
     Dosage: 1 DF, UNK
     Route: 048
     Dates: start: 20170601, end: 20180211
  24. LEVETIRACETAM. [Concomitant]
     Active Substance: LEVETIRACETAM
     Indication: ATRIAL FIBRILLATION
     Dosage: 500 MG, UNK
     Route: 048
     Dates: start: 20180212, end: 20180214
  25. ESOMEPRAZOLE. [Concomitant]
     Active Substance: ESOMEPRAZOLE MAGNESIUM
     Dosage: 40 MG, UNK
     Route: 048
     Dates: start: 20170601
  26. HYDROXYUREA. [Concomitant]
     Active Substance: HYDROXYUREA
     Dosage: 500 MG, UNK
     Route: 048
     Dates: start: 20171002, end: 20180702
  27. CONSLIFE [Concomitant]
     Indication: PROPHYLAXIS
     Dosage: 2 DF, UNK
     Route: 048
     Dates: start: 20180214, end: 20180221
  28. ETHACRIDINE [Concomitant]
     Active Substance: ETHACRIDINE
     Indication: PROPHYLAXIS
     Dosage: UNK
     Route: 065
     Dates: start: 20170429, end: 20170503
  29. METHYLPREDNISOLONE. [Concomitant]
     Active Substance: METHYLPREDNISOLONE
     Indication: MYELOPROLIFERATIVE NEOPLASM
     Dosage: 40 MG, UNK
     Route: 042
     Dates: start: 20170502
  30. AMIODARONE HCL [Concomitant]
     Active Substance: AMIODARONE HYDROCHLORIDE
     Indication: ATRIAL FIBRILLATION
     Dosage: 400 MG, UNK 200-400 MG
     Route: 048
     Dates: start: 20170418, end: 20170420
  31. AMIODARONE [Concomitant]
     Active Substance: AMIODARONE
     Indication: ATRIAL FIBRILLATION
     Dosage: 150 MG, UNK
     Route: 042
     Dates: start: 20180212, end: 20180212
  32. CHLORPHENAMINE MALEATE [Concomitant]
     Active Substance: CHLORPHENIRAMINE MALEATE
     Indication: PROPHYLAXIS
     Dosage: 5 MG, UNK
     Route: 042
     Dates: start: 20170419, end: 20170419
  33. NALBUPHINE [Concomitant]
     Active Substance: NALBUPHINE
     Indication: PROPHYLAXIS
     Dosage: 10 MG, UNK
     Route: 042
     Dates: start: 20180211, end: 20180211
  34. VALSARTAN. [Concomitant]
     Active Substance: VALSARTAN
     Dosage: 80 MG, UNK
     Route: 048
     Dates: start: 20170421, end: 20170515
  35. SENNOSIDE [Concomitant]
     Active Substance: SENNOSIDES
     Indication: PROPHYLAXIS
     Dosage: 24 MG, UNK
     Route: 048
     Dates: start: 20170421, end: 20170430
  36. DILTIAZEM. [Concomitant]
     Active Substance: DILTIAZEM
     Indication: CARDIAC FAILURE
     Dosage: 25 MG, UNK
     Route: 042
     Dates: start: 20180211, end: 20180212
  37. DILTIAZEM. [Concomitant]
     Active Substance: DILTIAZEM
     Dosage: 30 MG, UNK
     Route: 048
     Dates: start: 20180213, end: 20180221
  38. HYDROXYUREA. [Concomitant]
     Active Substance: HYDROXYUREA
     Indication: MYELOPROLIFERATIVE NEOPLASM
     Dosage: 500 MG, UNK
     Route: 048
     Dates: start: 20070809, end: 20170817
  39. HYDROXYUREA. [Concomitant]
     Active Substance: HYDROXYUREA
     Dosage: 500 MG, UNK
     Route: 048
     Dates: start: 20170612, end: 20171002
  40. ACETYLCYSTEINE. [Concomitant]
     Active Substance: ACETYLCYSTEINE
     Indication: PROPHYLAXIS
     Dosage: 600 MG, UNK
     Route: 048
     Dates: start: 20180212, end: 20180221
  41. FEBUXOSTAT. [Concomitant]
     Active Substance: FEBUXOSTAT
     Indication: GOUT
     Dosage: 0.5 DF, UNK
     Route: 048
     Dates: start: 20160523, end: 20170417
  42. VALSARTAN. [Concomitant]
     Active Substance: VALSARTAN
     Dosage: 80 MG, UNK
     Route: 048
     Dates: start: 20170601
  43. METHYLPREDNISOLONE. [Concomitant]
     Active Substance: METHYLPREDNISOLONE
     Dosage: 40 MG, UNK
     Route: 042
     Dates: start: 20170504, end: 20170508
  44. MORPHINE [Concomitant]
     Active Substance: MORPHINE
     Indication: PROPHYLAXIS
     Dosage: 3 MG, UNK
     Route: 042
     Dates: start: 20170417, end: 20170417
  45. PREDNISOLON [Concomitant]
     Active Substance: PREDNISOLONE
     Indication: MYELOPROLIFERATIVE NEOPLASM
     Dosage: 10 MG, UNK
     Route: 048
     Dates: start: 20170508, end: 20170518
  46. JAKAVI [Suspect]
     Active Substance: RUXOLITINIB
     Dosage: 10 MG, UNK
     Route: 048
     Dates: start: 20170612
  47. AMIODARONE HCL [Concomitant]
     Active Substance: AMIODARONE HYDROCHLORIDE
     Dosage: 100 MG, UNK
     Route: 048
     Dates: start: 20170422, end: 20170422
  48. DEXLANSOPRAZOLE [Concomitant]
     Active Substance: DEXLANSOPRAZOLE
     Indication: PROPHYLAXIS
     Dosage: 60 MG, UNK
     Route: 048
     Dates: start: 20170204, end: 20170214
  49. IWELL [Concomitant]
     Dosage: 1 DF, UNK
     Route: 048
     Dates: start: 20170526, end: 20170602

REACTIONS (44)
  - Haemodynamic instability [Not Recovered/Not Resolved]
  - Hypoalbuminaemia [Unknown]
  - Pain [Not Recovered/Not Resolved]
  - Pneumobilia [Unknown]
  - Splenomegaly [Unknown]
  - Aortic stenosis [Unknown]
  - Pleural effusion [Unknown]
  - Stridor [Unknown]
  - Tachypnoea [Unknown]
  - Atrial fibrillation [Not Recovered/Not Resolved]
  - Hyperglycaemia [Recovered/Resolved]
  - Leukocytosis [Unknown]
  - Hepatic cyst [Unknown]
  - Injection site phlebitis [Recovered/Resolved]
  - Anaemia [Recovered/Resolved]
  - Anaemia [Recovered/Resolved]
  - Cough [Unknown]
  - Palpitations [Unknown]
  - Bile duct cancer [Unknown]
  - Tachycardia [Unknown]
  - Thrombocytopenia [Recovered/Resolved]
  - Cholelithiasis [Unknown]
  - Myelofibrosis [Unknown]
  - Musculoskeletal stiffness [Unknown]
  - Tenderness [Unknown]
  - Salmonella bacteraemia [Recovered/Resolved]
  - Stress ulcer [Unknown]
  - Acute respiratory failure [Recovered/Resolved]
  - Pneumonia [Recovered/Resolved]
  - Soft tissue infection [Not Recovered/Not Resolved]
  - Gastrointestinal haemorrhage [Recovered/Resolved]
  - Anaemia [Recovered/Resolved]
  - Dizziness [Unknown]
  - Procalcitonin increased [Unknown]
  - Pyrexia [Not Recovered/Not Resolved]
  - Hypotension [Unknown]
  - Mitral valve calcification [Unknown]
  - Second primary malignancy [Unknown]
  - Altered state of consciousness [Recovering/Resolving]
  - Anaemia [Recovered/Resolved]
  - Liver disorder [Unknown]
  - Fluid overload [Unknown]
  - Anaemia macrocytic [Not Recovered/Not Resolved]
  - Cerebral haemorrhage [Recovering/Resolving]

NARRATIVE: CASE EVENT DATE: 20170202
